FAERS Safety Report 24687100 (Version 1)
Quarter: 2024Q4

REPORT INFORMATION
  Report Type: Spontaneous
  Country: US (occurrence: US)
  Receive Date: 20241202
  Receipt Date: 20241202
  Transmission Date: 20250114
  Serious: Yes (Other)
  Sender: TEVA
  Company Number: US-TEVA-VS-3269247

PATIENT
  Age: 35 Year
  Sex: Female

DRUGS (1)
  1. ALBENDAZOLE [Suspect]
     Active Substance: ALBENDAZOLE
     Indication: Pneumonia
     Route: 048

REACTIONS (3)
  - Abortion spontaneous [Unknown]
  - Pneumonia [Unknown]
  - Maternal exposure during pregnancy [Unknown]
